FAERS Safety Report 9387511 (Version 1)
Quarter: 2013Q3

REPORT INFORMATION
  Report Type: Spontaneous
  Country: US (occurrence: None)
  Receive Date: 20130702
  Receipt Date: 20130702
  Transmission Date: 20140515
  Serious: Yes (Hospitalization)
  Sender: FDA-Public Use
  Company Number: US-ALKEM-000097

PATIENT
  Age: 59 Year
  Sex: Female
  Weight: 84 kg

DRUGS (1)
  1. GABAPENTIN (GABAPENTIN) [Suspect]
     Indication: BACK PAIN

REACTIONS (5)
  - Suicide attempt [None]
  - Intentional overdose [None]
  - Nausea [None]
  - Sedation [None]
  - Off label use [None]
